FAERS Safety Report 7224918-X (Version None)
Quarter: 2011Q1

REPORT INFORMATION
  Report Type: 
  Country: None (occurrence: None)
  Receive Date: 20110103
  Receipt Date: 20101227
  Transmission Date: 20110831
  Serious: Yes (Hospitalization)
  Sender: FDA-Public Use
  Company Number: 2010SP066395

PATIENT
  Age: 33 Year
  Sex: Male

DRUGS (6)
  1. VALPROATE SODIUM [Concomitant]
  2. SULPRIDE  PAROXETINE HCL [Concomitant]
  3. REFLEX (MIRTAZAPINE /01293201/) [Suspect]
     Indication: DEPRESSION
     Dosage: 45 MG;QD;PO, 30 MG;QD;PO, 15 MG;QD;PO, 7.5 MG;QD;PO
     Route: 048
     Dates: start: 20101013, end: 20101013
  4. REFLEX (MIRTAZAPINE /01293201/) [Suspect]
     Indication: DEPRESSION
     Dosage: 45 MG;QD;PO, 30 MG;QD;PO, 15 MG;QD;PO, 7.5 MG;QD;PO
     Route: 048
     Dates: start: 20100709, end: 20100928
  5. REFLEX (MIRTAZAPINE /01293201/) [Suspect]
     Indication: DEPRESSION
     Dosage: 45 MG;QD;PO, 30 MG;QD;PO, 15 MG;QD;PO, 7.5 MG;QD;PO
     Route: 048
     Dates: start: 20100618, end: 20100808
  6. ETHYL LOFLAZEPATE [Concomitant]

REACTIONS (4)
  - DIABETIC KETOACIDOSIS [None]
  - WEIGHT DECREASED [None]
  - DIABETES MELLITUS [None]
  - INCREASED APPETITE [None]
